FAERS Safety Report 20077289 (Version 1)
Quarter: 2021Q4

REPORT INFORMATION
  Report Type: Spontaneous
  Country: US (occurrence: US)
  Receive Date: 20211116
  Receipt Date: 20211116
  Transmission Date: 20220303
  Serious: No
  Sender: FDA-Public Use
  Company Number: US-KALA PHARAMACEUTICALS-2021KLA00094

PATIENT
  Sex: Male

DRUGS (2)
  1. EYSUVIS [Suspect]
     Active Substance: LOTEPREDNOL ETABONATE
     Indication: Dry eye
     Dosage: UNK, 2X/DAY IN BOTH EYES
     Route: 047
     Dates: start: 202109, end: 202109
  2. EYSUVIS [Suspect]
     Active Substance: LOTEPREDNOL ETABONATE
     Dosage: UNK, 4X/DAY IN BOTH EYES
     Route: 047
     Dates: start: 202109

REACTIONS (3)
  - Instillation site erythema [Unknown]
  - Off label use [Recovered/Resolved]
  - Instillation site pain [Unknown]

NARRATIVE: CASE EVENT DATE: 20210901
